FAERS Safety Report 25282532 (Version 1)
Quarter: 2025Q2

REPORT INFORMATION
  Report Type: Spontaneous
  Country: GB (occurrence: GB)
  Receive Date: 20250508
  Receipt Date: 20250508
  Transmission Date: 20250716
  Serious: Yes (Life-Threatening, Disabling, Other)
  Sender: MYLAN
  Company Number: None

PATIENT
  Age: 43 Year
  Sex: Female
  Weight: 70 kg

DRUGS (4)
  1. SERTRALINE [Suspect]
     Active Substance: SERTRALINE HYDROCHLORIDE
     Indication: Anxiety
     Dosage: 100 MILLIGRAM, AM
     Dates: start: 20240201, end: 20250506
  2. SERTRALINE [Suspect]
     Active Substance: SERTRALINE HYDROCHLORIDE
     Dosage: 100 MILLIGRAM, AM
     Route: 065
     Dates: start: 20240201, end: 20250506
  3. SERTRALINE [Suspect]
     Active Substance: SERTRALINE HYDROCHLORIDE
     Dosage: 100 MILLIGRAM, AM
     Route: 065
     Dates: start: 20240201, end: 20250506
  4. SERTRALINE [Suspect]
     Active Substance: SERTRALINE HYDROCHLORIDE
     Dosage: 100 MILLIGRAM, AM
     Dates: start: 20240201, end: 20250506

REACTIONS (1)
  - Nightmare [Not Recovered/Not Resolved]

NARRATIVE: CASE EVENT DATE: 20250506
